FAERS Safety Report 23538822 (Version 2)
Quarter: 2024Q1

REPORT INFORMATION
  Report Type: Spontaneous
  Country: IN (occurrence: IN)
  Receive Date: 20240219
  Receipt Date: 20240223
  Transmission Date: 20240410
  Serious: Yes (Hospitalization, Other)
  Sender: FDA-Public Use
  Company Number: IN-TORRENT-00003458

PATIENT
  Age: 36 Year
  Sex: Male

DRUGS (5)
  1. RISPERIDONE [Suspect]
     Active Substance: RISPERIDONE
     Indication: Intellectual disability
     Route: 065
  2. VALPROATE SODIUM [Suspect]
     Active Substance: VALPROATE SODIUM
     Indication: Bipolar disorder
     Dosage: UNKNOWN
     Route: 065
  3. CLONAZEPAM [Concomitant]
     Active Substance: CLONAZEPAM
     Indication: Bipolar disorder
     Route: 065
  4. LITHIUM [Concomitant]
     Active Substance: LITHIUM
     Indication: Intellectual disability
     Dosage: 1500 MG
     Route: 065
  5. QUETIAPINE [Concomitant]
     Active Substance: QUETIAPINE
     Indication: Bipolar disorder
     Dosage: UNKNOWN
     Route: 065

REACTIONS (8)
  - Hyperammonaemia [Recovering/Resolving]
  - Catatonia [Recovering/Resolving]
  - Seizure [Recovering/Resolving]
  - Torticollis [Unknown]
  - Hyponatraemia [Recovering/Resolving]
  - Cerebellar atrophy [Unknown]
  - Drug withdrawal convulsions [Recovering/Resolving]
  - Generalised tonic-clonic seizure [Recovered/Resolved]
